FAERS Safety Report 10949225 (Version 1)
Quarter: 2015Q1

REPORT INFORMATION
  Report Type: Spontaneous
  Country: US (occurrence: None)
  Receive Date: 20150323
  Receipt Date: 20150323
  Transmission Date: 20150721
  Serious: Yes (Hospitalization)
  Sender: FDA-Public Use
  Company Number: None

PATIENT
  Age: 50 Year
  Sex: Female
  Weight: 68.04 kg

DRUGS (2)
  1. PROLIA [Suspect]
     Active Substance: DENOSUMAB
     Indication: FRACTURE
     Dosage: 1 SHOT EVERY 6 MONTHS
     Route: 030
  2. PROLIA [Suspect]
     Active Substance: DENOSUMAB
     Indication: OSTEOPOROSIS
     Dosage: 1 SHOT EVERY 6 MONTHS
     Route: 030

REACTIONS (9)
  - Fatigue [None]
  - Nausea [None]
  - Pneumonia [None]
  - Hyperthyroidism [None]
  - Oesophageal spasm [None]
  - Vomiting [None]
  - Weight decreased [None]
  - Asthenia [None]
  - White blood cell count decreased [None]

NARRATIVE: CASE EVENT DATE: 20150101
